FAERS Safety Report 6307267-3 (Version None)
Quarter: 2009Q3

REPORT INFORMATION
  Report Type: 
  Country: None (occurrence: None)
  Receive Date: 20090813
  Receipt Date: 20080121
  Transmission Date: 20100115
  Serious: Yes (Hospitalization, Congenital Anomaly, Other)
  Sender: FDA-Public Use
  Company Number: US-ASTRAZENECA-2006UW11704

PATIENT
  Age: 16189 Day
  Sex: Male
  Weight: 83.5 kg

DRUGS (48)
  1. SEROQUEL [Suspect]
     Indication: DEPRESSION
     Dosage: 150 MG DAILY AND 25 MG QHS
     Route: 048
     Dates: start: 20030401, end: 20050601
  2. SEROQUEL [Suspect]
     Route: 048
     Dates: start: 20030709
  3. SEROQUEL [Suspect]
     Dosage: 25 MG       1 TO 4 TABLETS AT BEDTIME
     Route: 048
     Dates: start: 20050526, end: 20060526
  4. ZYPREXA [Suspect]
     Route: 048
     Dates: start: 20000907
  5. ZYPREXA [Suspect]
     Dates: start: 20030101, end: 20050101
  6. EFFEXOR [Concomitant]
     Indication: DEPRESSION
     Route: 048
     Dates: start: 20030917, end: 20050930
  7. EFFEXOR [Concomitant]
     Route: 048
     Dates: start: 20050930
  8. EFFEXOR [Concomitant]
     Dosage: STRENGTH-  75MG, 150MG, 300MG  DOSE- 75MG-300 MG DAILY
  9. DAPSONE [Concomitant]
  10. CLONAZEPAM [Concomitant]
     Route: 048
     Dates: start: 20030917
  11. REMERON [Concomitant]
     Indication: SLEEP DISORDER
  12. CLARITIN [Concomitant]
  13. KALETRA [Concomitant]
  14. ZIAGEN [Concomitant]
  15. LITHIUM CARBONATE [Concomitant]
     Dates: start: 20031114
  16. LITHIUM CARBONATE [Concomitant]
  17. VIRAMUNE [Concomitant]
  18. TRAZODONE HCL [Concomitant]
     Route: 048
     Dates: start: 20040115
  19. MIRTAZAPINE [Concomitant]
     Route: 048
     Dates: start: 20040212
  20. FLUCONAZOLE [Concomitant]
     Route: 048
     Dates: start: 20050214
  21. FLUCONAZOLE [Concomitant]
     Route: 048
     Dates: start: 20050708
  22. TRIZIVIR [Concomitant]
     Route: 048
     Dates: start: 20050128
  23. COMBIVIR [Concomitant]
     Route: 048
     Dates: start: 20050708
  24. REYATAZ [Concomitant]
     Route: 048
     Dates: start: 20050708
  25. REYATAZ [Concomitant]
     Route: 048
  26. AMBIEN [Concomitant]
     Route: 048
     Dates: start: 20050708
  27. PROTONIX [Concomitant]
     Route: 048
     Dates: start: 20050708
  28. PROMETHAZINE [Concomitant]
     Route: 048
  29. ZITHROMAX [Concomitant]
     Dosage: 600 MG ONCE A WEEK
     Route: 048
     Dates: start: 20050708
  30. LISINOPRIL [Concomitant]
     Route: 048
     Dates: start: 20050811
  31. LISINOPRIL [Concomitant]
  32. PAROXETINE [Concomitant]
     Route: 048
     Dates: start: 20060105
  33. TRIMETHOPRIM + SULFAMETHOXAZOLE [Concomitant]
     Dosage: 1 TABLET ON MON,. WED, FRI
     Route: 048
     Dates: start: 20050708
  34. RISPERDAL [Concomitant]
     Route: 048
     Dates: start: 20060105
  35. HYDROCORTISONE [Concomitant]
     Dosage: APPLY THREE TIMES DAILY
     Route: 061
     Dates: start: 20050708
  36. FUZEON [Concomitant]
     Route: 058
     Dates: start: 20060413
  37. MUPIROCIN [Concomitant]
     Dosage: APPLY 4 TIMES A DAY TO AFFECTED AREA
     Route: 061
     Dates: start: 20060112
  38. CHEMOTHERAPY [Concomitant]
     Indication: OESOPHAGEAL CARCINOMA
  39. DECADRON [Concomitant]
  40. ATIVAN [Concomitant]
     Route: 048
  41. ATIVAN [Concomitant]
     Dosage: STRENGTH- 1MG, 2MG  DOSE- 1MG-6MG DAILY
     Route: 048
  42. VALTREX [Concomitant]
  43. ZESTORETIC [Concomitant]
     Dosage: 20/25 ONE DAILY
  44. NORVIR [Concomitant]
     Route: 048
  45. SUSTIVA [Concomitant]
     Route: 048
  46. ACYCLOVIR [Concomitant]
     Route: 048
  47. ALPRAZOLAM [Concomitant]
     Indication: ANXIETY
     Route: 048
  48. IMITREX [Concomitant]
     Indication: MIGRAINE
     Route: 048

REACTIONS (10)
  - CEREBROVASCULAR ACCIDENT [None]
  - DIABETES MELLITUS [None]
  - DIABETIC COMA [None]
  - DIABETIC COMPLICATION [None]
  - FOOT FRACTURE [None]
  - HEART VALVE INCOMPETENCE [None]
  - LEFT VENTRICULAR HYPERTROPHY [None]
  - MENISCUS LESION [None]
  - OESOPHAGEAL CARCINOMA [None]
  - TRANSIENT ISCHAEMIC ATTACK [None]
